FAERS Safety Report 5366921-0 (Version None)
Quarter: 2007Q2

REPORT INFORMATION
  Report Type: 
  Country: None (occurrence: None)
  Receive Date: 20070622
  Receipt Date: 20070416
  Transmission Date: 20071010
  Serious: No
  Sender: FDA-Public Use
  Company Number: US-ASTRAZENECA-2007UW07365

PATIENT
  Age: 62 Year
  Sex: Female
  Weight: 55.8 kg

DRUGS (10)
  1. RHINOCORT [Suspect]
     Route: 045
  2. LEXAPRO [Concomitant]
  3. RESTASIS [Concomitant]
  4. MIRALAX [Concomitant]
  5. FISH OIL [Concomitant]
  6. ASPIRIN [Concomitant]
     Route: 048
  7. CALTRATE [Concomitant]
  8. GLUCOSAMINE [Concomitant]
  9. VITAMIN CAP [Concomitant]
  10. ESTRASORB [Concomitant]

REACTIONS (2)
  - BLOOD PRESSURE DIASTOLIC INCREASED [None]
  - HEART RATE INCREASED [None]
